FAERS Safety Report 5616236-8 (Version None)
Quarter: 2008Q1

REPORT INFORMATION
  Report Type: 
  Country: None (occurrence: None)
  Receive Date: 20080205
  Receipt Date: 20080125
  Transmission Date: 20080703
  Serious: Yes (Other)
  Sender: FDA-Public Use
  Company Number: 2008US000356

PATIENT
  Age: 58 Year
  Sex: Female

DRUGS (5)
  1. PROGRAF [Suspect]
     Indication: LIVER TRANSPLANT
     Dosage: 2 MG, BID, ORAL
     Route: 048
  2. SPIRONOLACTONE [Concomitant]
  3. FUROSEMIDE                     (FUROSEMIDE SODIUM) [Concomitant]
  4. RIFAMPICIN [Concomitant]
  5. URSODIOL                (URSODEOXYCHOLIC ACID) [Concomitant]

REACTIONS (12)
  - ABSCESS [None]
  - BACTERIAL INFECTION [None]
  - BLOOD ALBUMIN INCREASED [None]
  - DIARRHOEA [None]
  - ERYTHEMA [None]
  - ESCHERICHIA INFECTION [None]
  - FATIGUE [None]
  - INFLAMMATION [None]
  - LIVER DISORDER [None]
  - MALACOPLAKIA VESICAE [None]
  - OEDEMA MUCOSAL [None]
  - OEDEMA PERIPHERAL [None]
